FAERS Safety Report 5738021-9 (Version None)
Quarter: 2008Q2

REPORT INFORMATION
  Report Type: 
  Country: None (occurrence: None)
  Receive Date: 20080508
  Receipt Date: 20080229
  Transmission Date: 20081010
  Serious: Yes (Other)
  Sender: FDA-Public Use
  Company Number: 45835

PATIENT
  Age: 77 Year
  Sex: Male
  Weight: 77.1115 kg

DRUGS (1)
  1. MITOMYCIN [Suspect]
     Indication: SCAR
     Dosage: 4MG TOPICAL APPLICATION/2 MINUTE
     Route: 061
     Dates: start: 20080108

REACTIONS (1)
  - IRRITABILITY [None]
